FAERS Safety Report 25527277 (Version 2)
Quarter: 2025Q3

REPORT INFORMATION
  Report Type: Spontaneous
  Country: US (occurrence: US)
  Receive Date: 20250708
  Receipt Date: 20250718
  Transmission Date: 20251020
  Serious: Yes (Disabling, Other)
  Sender: ABBVIE
  Company Number: US-ABBVIE-6355649

PATIENT
  Sex: Female

DRUGS (1)
  1. REFRESH P.M. [Suspect]
     Active Substance: MINERAL OIL\PETROLATUM
     Indication: Dry eye
     Route: 047
     Dates: start: 2020

REACTIONS (6)
  - Disability [Unknown]
  - Hypoacusis [Unknown]
  - Corneal operation [Unknown]
  - Visual impairment [Unknown]
  - Liquid product physical issue [Unknown]
  - Liquid product physical issue [Not Recovered/Not Resolved]
